FAERS Safety Report 8613380-8 (Version None)
Quarter: 2012Q3

REPORT INFORMATION
  Report Type: 
  Country: None (occurrence: None)
  Receive Date: 20120822
  Receipt Date: 20120723
  Transmission Date: 20120928
  Serious: Yes (Other)
  Sender: FDA-Public Use
  Company Number: US-009507513-1207USA010633

PATIENT

DRUGS (4)
  1. ATORVASTATIN CALCIUM [Suspect]
     Dosage: UNK
  2. ATORVASTATIN CALCIUM [Suspect]
     Dosage: UNK
  3. ZOCOR [Suspect]
     Route: 048
  4. LIPITOR [Suspect]
     Dosage: 20 MG, QD
     Route: 048

REACTIONS (5)
  - MUCOSAL EXFOLIATION [None]
  - SKIN EXFOLIATION [None]
  - ABDOMINAL PAIN [None]
  - CONTUSION [None]
  - HYPERSENSITIVITY [None]
